FAERS Safety Report 25982968 (Version 2)
Quarter: 2025Q4

REPORT INFORMATION
  Report Type: Spontaneous
  Country: EU (occurrence: EU)
  Receive Date: 20251031
  Receipt Date: 20251114
  Transmission Date: 20260118
  Serious: Yes (Hospitalization)
  Sender: BOEHRINGER INGELHEIM
  Company Number: None

PATIENT
  Age: 84 Year
  Sex: Male
  Weight: 75 kg

DRUGS (9)
  1. EMPAGLIFLOZIN [Suspect]
     Active Substance: EMPAGLIFLOZIN
     Indication: Product used for unknown indication
  2. SYNJARDY [Suspect]
     Active Substance: EMPAGLIFLOZIN\METFORMIN HYDROCHLORIDE
     Indication: Product used for unknown indication
     Dosage: 5 MG/1000 MG
     Dates: end: 20251016
  3. Diamicron MR 30 mg Tabletten mit ver?nderter Wirkstofffreisetzung [Concomitant]
     Indication: Product used for unknown indication
     Dosage: 1-0-1-0?ENGLISCH TRANSLATION PRODUCT NAME: DIAMICRON MR 30 MG MODIFIED-RELEASE TABLETS
  4. Oleovit D3 Tropfen [Concomitant]
     Indication: Product used for unknown indication
     Dosage: 30GTT/W
  5. Thrombo ASS 100 mg-Filmtabletten [Concomitant]
     Indication: Product used for unknown indication
  6. Dioscomb 500 mg Filmtabletten [Concomitant]
     Indication: Product used for unknown indication
  7. Nomexor 5 mg - Tabletten [Concomitant]
     Indication: Product used for unknown indication
  8. Telmisartan/HCT ratiopharm 80 mg/12,5 mg Tabletten [Concomitant]
     Indication: Product used for unknown indication
  9. Simvastatin 20 mg - Filmtabletten [Concomitant]
     Indication: Product used for unknown indication

REACTIONS (11)
  - Decreased appetite [Recovering/Resolving]
  - Fatigue [Recovering/Resolving]
  - Malaise [Recovering/Resolving]
  - Eating disorder [Unknown]
  - Ketoacidosis [Recovering/Resolving]
  - Hyperglycaemia [Recovering/Resolving]
  - Tachypnoea [Recovering/Resolving]
  - Abdominal pain [Recovering/Resolving]
  - Polyuria [Recovering/Resolving]
  - Dysuria [Recovering/Resolving]
  - Thirst [Recovering/Resolving]

NARRATIVE: CASE EVENT DATE: 20251001
